FAERS Safety Report 9365317 (Version 2)
Quarter: 2013Q4

REPORT INFORMATION
  Report Type: Report from Study
  Country: US (occurrence: US)
  Receive Date: 20130625
  Receipt Date: 20131120
  Transmission Date: 20140711
  Serious: Yes (Other)
  Sender: FDA-Public Use
  Company Number: US-ROCHE-1227211

PATIENT
  Age: 71 Year
  Sex: Female
  Weight: 46.76 kg

DRUGS (11)
  1. RITUXAN [Suspect]
     Indication: RHEUMATOID ARTHRITIS
     Route: 042
     Dates: start: 20130418
  2. RITUXAN [Suspect]
     Route: 042
     Dates: start: 20130501
  3. TYLENOL EXTRA STRENGTH [Suspect]
     Indication: ARTHRALGIA
     Route: 048
  4. PREDNISONE [Concomitant]
     Indication: RHEUMATOID ARTHRITIS
     Route: 048
  5. PREDNISONE [Concomitant]
     Indication: SARCOIDOSIS
     Route: 048
  6. PREDNISONE [Concomitant]
     Route: 048
  7. PREDNISONE [Concomitant]
     Route: 048
  8. LISINOPRIL [Concomitant]
     Indication: HYPERTENSION
     Route: 048
  9. ATENOLOL [Concomitant]
     Indication: HYPERTENSION
     Route: 048
  10. TRIAMTERENE [Concomitant]
     Indication: HYPERTENSION
     Dosage: 37.5/25 MG
     Route: 048
  11. OMEPRAZOLE [Concomitant]
     Route: 048

REACTIONS (10)
  - Dyspnoea [Recovered/Resolved]
  - Pain [Not Recovered/Not Resolved]
  - Fatigue [Not Recovered/Not Resolved]
  - Musculoskeletal stiffness [Not Recovered/Not Resolved]
  - Weight decreased [Not Recovered/Not Resolved]
  - Decreased appetite [Not Recovered/Not Resolved]
  - Hyperbilirubinaemia [Unknown]
  - Rheumatoid arthritis [Unknown]
  - Dizziness [Recovered/Resolved]
  - Painful defaecation [Not Recovered/Not Resolved]
